FAERS Safety Report 7955205-X (Version None)
Quarter: 2011Q4

REPORT INFORMATION
  Report Type: 
  Country: None (occurrence: None)
  Receive Date: 20111129
  Receipt Date: 20111116
  Transmission Date: 20120403
  Serious: Yes (Other)
  Sender: FDA-Public Use
  Company Number: 1113879

PATIENT
  Age: 34 Year
  Sex: Female

DRUGS (5)
  1. DOCETAXEL [Suspect]
     Indication: BREAST CANCER STAGE II
     Dosage: 127 MG MILLIGRAM(S), INTRAVENOUS
     Route: 042
     Dates: start: 20110727, end: 20110928
  2. DOXORUBICIN HCL [Concomitant]
  3. ZOFRAN [Concomitant]
  4. (RANIDIL) [Concomitant]
  5. DEXAMETHASONE SODIUM PHOSPHATE [Concomitant]

REACTIONS (1)
  - DERMATITIS EXFOLIATIVE [None]
